FAERS Safety Report 8162303-7 (Version None)
Quarter: 2012Q1

REPORT INFORMATION
  Report Type: 
  Country: None (occurrence: None)
  Receive Date: 20120103
  Receipt Date: 20111025
  Transmission Date: 20120608
  Serious: No
  Sender: FDA-Public Use
  Company Number: AE-2011-001960

PATIENT
  Age: 61 Year
  Sex: Female
  Weight: 118.3888 kg

DRUGS (6)
  1. RIBAVIRIN [Concomitant]
  2. WELLBUTRIN [Concomitant]
  3. INCIVEK [Suspect]
     Dosage: (3 IN 1 D), ORAL
     Route: 048
     Dates: start: 20110905
  4. NORVASC [Concomitant]
  5. PEGINTERFERON (PEGINTERFERON ALFA-2A) [Concomitant]
  6. LEXAPRO [Concomitant]

REACTIONS (1)
  - GINGIVAL SWELLING [None]
